FAERS Safety Report 9099886 (Version 1)
Quarter: 2013Q1

REPORT INFORMATION
  Report Type: Spontaneous
  Country: FR (occurrence: FR)
  Receive Date: 20130214
  Receipt Date: 20130214
  Transmission Date: 20140127
  Serious: Yes (Life-Threatening)
  Sender: FDA-Public Use
  Company Number: FR-JNJFOC-20130202700

PATIENT
  Age: 81 Year
  Sex: Female

DRUGS (8)
  1. CONTRAMAL [Suspect]
     Indication: LUMBAR VERTEBRAL FRACTURE
     Route: 048
     Dates: start: 20120615, end: 20120618
  2. AMOXICILLIN [Suspect]
     Indication: C-REACTIVE PROTEIN INCREASED
     Route: 048
     Dates: start: 20120614, end: 20120618
  3. AMOXICILLIN [Suspect]
     Indication: PYREXIA
     Route: 048
     Dates: start: 20120614, end: 20120618
  4. AMOXICILLIN [Suspect]
     Indication: LEUKOCYTOSIS
     Route: 048
     Dates: start: 20120614, end: 20120618
  5. PREVISCAN (FLUINDIONE) [Interacting]
     Indication: PRODUCT USED FOR UNKNOWN INDICATION
     Route: 048
     Dates: end: 20120618
  6. CLAVULANIC ACID [Suspect]
     Indication: PYREXIA
     Route: 048
     Dates: start: 20120614, end: 20120618
  7. CLAVULANIC ACID [Suspect]
     Indication: LEUKOCYTOSIS
     Route: 048
     Dates: start: 20120614, end: 20120618
  8. CLAVULANIC ACID [Suspect]
     Indication: C-REACTIVE PROTEIN INCREASED
     Route: 048
     Dates: start: 20120614, end: 20120618

REACTIONS (2)
  - International normalised ratio increased [Recovered/Resolved]
  - Drug interaction [Recovered/Resolved]
